FAERS Safety Report 12952494 (Version 1)
Quarter: 2016Q4

REPORT INFORMATION
  Report Type: Spontaneous
  Country: US (occurrence: US)
  Receive Date: 20161117
  Receipt Date: 20161117
  Transmission Date: 20170207
  Serious: No
  Sender: FDA-Public Use
  Company Number: US-SA-2016SA181491

PATIENT
  Age: 70 Year
  Sex: Male

DRUGS (4)
  1. SOLOSTAR [Suspect]
     Active Substance: DEVICE
     Indication: TYPE 2 DIABETES MELLITUS
     Dosage: 120 U IN DIVIDED DOSE
     Dates: start: 201606
  2. TOUJEO [Suspect]
     Active Substance: INSULIN GLARGINE
     Indication: TYPE 2 DIABETES MELLITUS
     Dosage: 120 U IN DIVIDED DOSE
     Route: 065
     Dates: start: 201606
  3. LANTUS SOLOSTAR [Concomitant]
     Active Substance: INSULIN GLARGINE
     Dosage: DOSE:120 UNIT(S)
  4. SOLOSTAR [Concomitant]
     Active Substance: DEVICE

REACTIONS (5)
  - Blood glucose increased [Unknown]
  - Device issue [Unknown]
  - Injection site nodule [Unknown]
  - Product use issue [Unknown]
  - Product use issue [Unknown]

NARRATIVE: CASE EVENT DATE: 201606
